FAERS Safety Report 5330692-4 (Version None)
Quarter: 2007Q2

REPORT INFORMATION
  Report Type: 
  Country: None (occurrence: None)
  Receive Date: 20070522
  Receipt Date: 20070518
  Transmission Date: 20071010
  Serious: Yes (Life-Threatening, Other)
  Sender: FDA-Public Use
  Company Number: PHEH2006US00549

PATIENT
  Age: 4 Year
  Sex: Male
  Weight: 17.1 kg

DRUGS (10)
  1. ELIDEL [Suspect]
     Indication: DERMATITIS ATOPIC
     Dosage: UNK, UNK
     Route: 061
     Dates: start: 20021001
  2. ZANTAC [Concomitant]
     Indication: GASTROOESOPHAGEAL REFLUX DISEASE
     Dosage: 37.5 MG, BID
     Route: 048
  3. TRILEPTAL [Concomitant]
     Indication: CONVULSION
     Route: 048
     Dates: start: 20020801, end: 20050501
  4. BENADRYL CREAM [Concomitant]
     Indication: RASH
     Dosage: 2 % 3-4 TIMES DAILY PRN
     Route: 061
     Dates: start: 20051219, end: 20060101
  5. BENADRYL ^PFIZER WARNER-LAMBERT^ [Concomitant]
     Indication: PRURITUS
     Dosage: Q8H PRN
     Route: 048
     Dates: start: 20060113
  6. HYDROCORTISONE [Concomitant]
  7. DEXAMETHASONE 0.5MG TAB [Concomitant]
  8. CORTISONE ACETATE [Concomitant]
  9. DESONIDE [Concomitant]
  10. ATARAX [Concomitant]

REACTIONS (7)
  - ACUTE LYMPHOCYTIC LEUKAEMIA [None]
  - BONE PAIN [None]
  - GAIT DISTURBANCE [None]
  - LYMPHADENOPATHY [None]
  - PAIN IN EXTREMITY [None]
  - PANCYTOPENIA [None]
  - PYREXIA [None]
